FAERS Safety Report 18697715 (Version 2)
Quarter: 2021Q1

REPORT INFORMATION
  Report Type: Spontaneous
  Country: US (occurrence: US)
  Receive Date: 20210105
  Receipt Date: 20210208
  Transmission Date: 20210419
  Serious: Yes (Death, Hospitalization, Other)
  Sender: FDA-Public Use
  Company Number: US-DRREDDYS-USA/USA/20/0130696

PATIENT
  Age: 60 Year
  Sex: Female

DRUGS (6)
  1. METRONIDAZOLE. [Concomitant]
     Active Substance: METRONIDAZOLE
     Indication: CLOSTRIDIUM DIFFICILE COLITIS
     Route: 042
  2. FIDAXOMICIN [Concomitant]
     Active Substance: FIDAXOMICIN
     Indication: CLOSTRIDIUM DIFFICILE COLITIS
  3. BORTEZOMIB. [Suspect]
     Active Substance: BORTEZOMIB
     Indication: AMYLOIDOSIS
     Dosage: BORTEZOMIB 1.3 MG/M2 (2.6MG) WEEKLY REGIMEN
     Route: 058
  4. CYCLOPHOSPHAMIDE. [Suspect]
     Active Substance: CYCLOPHOSPHAMIDE
     Indication: CHEMOTHERAPY
  5. DEXAMETHASONE SODIUM PHOSPHATE INJECTION, 4 MG/ML [Suspect]
     Active Substance: DEXAMETHASONE SODIUM PHOSPHATE
     Indication: CHEMOTHERAPY
     Dosage: WEEKLY REGIMEN
     Route: 048
  6. VANCOMYCIN [Concomitant]
     Active Substance: VANCOMYCIN
     Indication: CLOSTRIDIUM DIFFICILE COLITIS

REACTIONS (4)
  - Gastrointestinal disorder [Fatal]
  - Leukocytosis [Unknown]
  - Megacolon [Fatal]
  - Hypotension [Unknown]
